FAERS Safety Report 7074188-0 (Version None)
Quarter: 2010Q4

REPORT INFORMATION
  Report Type: 
  Country: None (occurrence: None)
  Receive Date: 20101029
  Receipt Date: 20101021
  Transmission Date: 20110411
  Serious: Yes (Hospitalization, Other)
  Sender: FDA-Public Use
  Company Number: IE-PFIZER INC-2008065879

PATIENT
  Age: 58 Year
  Sex: Male

DRUGS (9)
  1. LIPITOR [Suspect]
     Dosage: 40 MG, 1X/DAY
     Route: 048
     Dates: start: 20010101
  2. FUSIDIC ACID [Interacting]
     Dosage: 1.5 G, UNK
  3. FUCIDINE CAP [Interacting]
     Indication: LOCALISED INFECTION
     Dosage: 2000 MG, UNK
     Route: 048
     Dates: start: 20080101
  4. INSULIN [Concomitant]
     Dosage: UNK
  5. ACETYLSALICYLIC ACID SRT [Concomitant]
     Dosage: UNK
  6. BISOPROLOL [Concomitant]
     Dosage: UNK
  7. RAMIPRIL [Concomitant]
     Dosage: UNK
  8. AMITRIPTYLINE HCL [Concomitant]
     Dosage: UNK
  9. FLUCLOXACILLIN [Concomitant]

REACTIONS (5)
  - DIALYSIS [None]
  - DRUG INTERACTION [None]
  - DRUG TOXICITY [None]
  - RENAL FAILURE ACUTE [None]
  - RHABDOMYOLYSIS [None]
